FAERS Safety Report 5024305-9 (Version None)
Quarter: 2006Q2

REPORT INFORMATION
  Report Type: 
  Country: None (occurrence: None)
  Receive Date: 20060613
  Receipt Date: 20060602
  Transmission Date: 20061013
  Serious: Yes (Hospitalization)
  Sender: FDA-Public Use
  Company Number: FR-AMGEN-UK181768

PATIENT
  Age: 64 Year
  Sex: Female
  Weight: 56 kg

DRUGS (3)
  1. KEPIVANCE [Suspect]
     Indication: DRUG USE FOR UNKNOWN INDICATION
     Route: 042
     Dates: start: 20060421, end: 20060423
  2. POLARAMINE [Concomitant]
     Route: 042
  3. DESLORATADINE [Concomitant]
     Route: 065

REACTIONS (4)
  - FACE OEDEMA [None]
  - OEDEMA PERIPHERAL [None]
  - URTICARIA [None]
  - URTICARIA GENERALISED [None]
